FAERS Safety Report 21792267 (Version 1)
Quarter: 2022Q4

REPORT INFORMATION
  Report Type: Report from Study
  Country: BR (occurrence: BR)
  Receive Date: 20221229
  Receipt Date: 20221229
  Transmission Date: 20230112
  Serious: Yes (Other)
  Sender: FDA-Public Use
  Company Number: BR-002147023-NVSC2022BR299037

PATIENT
  Age: 81 Year
  Sex: Female

DRUGS (1)
  1. GLYCOPYRRONIUM\INDACATEROL [Suspect]
     Active Substance: GLYCOPYRRONIUM\INDACATEROL
     Indication: Product used for unknown indication
     Dosage: 110 + 50 (UNIT NOT REPORTED)
     Route: 065

REACTIONS (3)
  - Cataract [Not Recovered/Not Resolved]
  - Visual impairment [Not Recovered/Not Resolved]
  - Vision blurred [Unknown]
